FAERS Safety Report 15351674 (Version 2)
Quarter: 2018Q3

REPORT INFORMATION
  Report Type: Spontaneous
  Country: FR (occurrence: FR)
  Receive Date: 20180905
  Receipt Date: 20180906
  Transmission Date: 20181010
  Serious: Yes (Hospitalization)
  Sender: FDA-Public Use
  Company Number: FR-PFIZER INC-2018354128

PATIENT
  Age: 71 Year
  Sex: Male

DRUGS (9)
  1. RAMIPRIL. [Suspect]
     Active Substance: RAMIPRIL
     Indication: POISONING DELIBERATE
     Dosage: 1 DF, UNK (1 TOTAL)
     Route: 048
     Dates: start: 20180606, end: 20180606
  2. METFORMINE ZENTIVA [Suspect]
     Active Substance: METFORMIN HYDROCHLORIDE
     Indication: POISONING DELIBERATE
     Dosage: 2 DF, UNK
     Route: 048
     Dates: start: 20180606, end: 20180606
  3. SERETIDE [Concomitant]
     Active Substance: FLUTICASONE PROPIONATE\SALMETEROL XINAFOATE
     Dosage: UNK
  4. ZOLPIDEM TARTRATE. [Suspect]
     Active Substance: ZOLPIDEM TARTRATE
     Indication: POISONING DELIBERATE
     Dosage: 1 DF, UNK
     Route: 048
     Dates: start: 20180606, end: 20180606
  5. NATISPRAY [Concomitant]
     Active Substance: NITROGLYCERIN
     Indication: ANGINA PECTORIS
     Dosage: UNK
  6. ENALAPRIL MALEATE. [Suspect]
     Active Substance: ENALAPRIL MALEATE
     Indication: POISONING DELIBERATE
     Dosage: 2 DF, UNK
     Route: 048
     Dates: start: 20180606, end: 20180606
  7. ZOPICLONE [Suspect]
     Active Substance: ZOPICLONE
     Indication: POISONING DELIBERATE
     Dosage: 2 DF, UNK
     Route: 048
     Dates: start: 20180606, end: 20180606
  8. VENTOLINE ROTACAPS [Concomitant]
     Dosage: UNK
  9. AMOXICILLIN CLAVULANIC ACID [Suspect]
     Active Substance: AMOXICILLIN\CLAVULANIC ACID
     Indication: BRONCHITIS
     Dosage: UNK
     Route: 065

REACTIONS (3)
  - Somnolence [Recovered/Resolved]
  - Poisoning deliberate [Recovered/Resolved]
  - Dysarthria [Recovered/Resolved]

NARRATIVE: CASE EVENT DATE: 20180606
